FAERS Safety Report 10241610 (Version 2)
Quarter: 2014Q2

REPORT INFORMATION
  Report Type: Spontaneous
  Country: US (occurrence: None)
  Receive Date: 20140613
  Receipt Date: 20140619
  Transmission Date: 20141212
  Serious: Yes (Death)
  Sender: FDA-Public Use
  Company Number: UNT-2014-001678

PATIENT
  Age: 40 Year
  Sex: Female
  Weight: 92.5 kg

DRUGS (2)
  1. REMODULIN [Suspect]
     Indication: PULMONARY ARTERIAL HYPERTENSION
     Dosage: 0.092 UG/KG/MIN, CONTINUING, IV DRIP
     Route: 041
     Dates: start: 20090312
  2. SILDENAFIL (SILDENAFIL) [Concomitant]

REACTIONS (1)
  - Death [None]
